FAERS Safety Report 15730947 (Version 1)
Quarter: 2018Q4

REPORT INFORMATION
  Report Type: Spontaneous
  Country: US (occurrence: US)
  Receive Date: 20181217
  Receipt Date: 20181217
  Transmission Date: 20190205
  Serious: Yes (Hospitalization)
  Sender: FDA-Public Use
  Company Number: None

PATIENT
  Sex: Female

DRUGS (5)
  1. MELOXICAM 15MG [Concomitant]
     Active Substance: MELOXICAM
  2. AMLOD/BENAZP 5-10MG [Concomitant]
  3. GABAPENTIN 300MG [Concomitant]
     Active Substance: GABAPENTIN
  4. COSENTYX [Suspect]
     Active Substance: SECUKINUMAB
     Indication: ARTHRITIS
  5. CITALOPRAM [Concomitant]
     Active Substance: CITALOPRAM HYDROBROMIDE

REACTIONS (2)
  - Rotator cuff syndrome [None]
  - Bone fissure [None]
